FAERS Safety Report 23494875 (Version 1)
Quarter: 2024Q1

REPORT INFORMATION
  Report Type: Spontaneous
  Country: AE (occurrence: None)
  Receive Date: 20240207
  Receipt Date: 20240207
  Transmission Date: 20240410
  Serious: Yes (Other)
  Sender: FDA-Public Use
  Company Number: 2024A028306

PATIENT
  Sex: Female
  Weight: 68 kg

DRUGS (3)
  1. LYNPARZA [Suspect]
     Active Substance: OLAPARIB
     Indication: Ill-defined disorder
     Route: 048
  2. CARBOPLATIN [Concomitant]
     Active Substance: CARBOPLATIN
  3. GEMCITABINE [Concomitant]
     Active Substance: GEMCITABINE

REACTIONS (2)
  - Myelosuppression [Unknown]
  - Anaemia [Unknown]
